FAERS Safety Report 22022845 (Version 2)
Quarter: 2023Q2

REPORT INFORMATION
  Report Type: Spontaneous
  Country: US (occurrence: US)
  Receive Date: 20230222
  Receipt Date: 20230414
  Transmission Date: 20230721
  Serious: No
  Sender: FDA-Public Use
  Company Number: US-XERIS PHARMACEUTICALS-2023XER00024

PATIENT
  Age: 57 Year
  Sex: Female
  Weight: 56.689 kg

DRUGS (3)
  1. GVOKE [Suspect]
     Active Substance: GLUCAGON
     Indication: Hypoglycaemia
     Dosage: 1 MG, IN THE ABDOMEN AS NEEDED
     Dates: start: 20230127, end: 20230127
  2. SYNTHROID [Concomitant]
     Active Substance: LEVOTHYROXINE SODIUM
     Dosage: 200 ?G IN THE MORNING
  3. ZOLOFT [Concomitant]
     Active Substance: SERTRALINE HYDROCHLORIDE
     Dosage: 150 MG IN THE MORNING

REACTIONS (2)
  - Device malfunction [Recovered/Resolved]
  - Skin pressure mark [Recovered/Resolved]

NARRATIVE: CASE EVENT DATE: 20230127
